FAERS Safety Report 21995251 (Version 1)
Quarter: 2023Q1

REPORT INFORMATION
  Report Type: Spontaneous
  Country: US (occurrence: None)
  Receive Date: 20230214
  Receipt Date: 20230214
  Transmission Date: 20230417
  Serious: Yes (Death)
  Sender: FDA-Public Use
  Company Number: None

PATIENT
  Age: 60 Year
  Sex: Female

DRUGS (2)
  1. HEPARIN SODIUM [Suspect]
     Active Substance: HEPARIN SODIUM
     Indication: Acute coronary syndrome
     Dates: start: 20221013, end: 20221013
  2. HEPARIN SODIUM [Concomitant]
     Active Substance: HEPARIN SODIUM
     Dates: start: 20221013, end: 20221013

REACTIONS (5)
  - Ruptured cerebral aneurysm [None]
  - Encephalopathy [None]
  - Haemorrhagic stroke [None]
  - Pulmonary embolism [None]
  - Troponin increased [None]

NARRATIVE: CASE EVENT DATE: 20221013
